FAERS Safety Report 5085016-7 (Version None)
Quarter: 2006Q3

REPORT INFORMATION
  Report Type: 
  Country: None (occurrence: None)
  Receive Date: 20060815
  Receipt Date: 20060804
  Transmission Date: 20061208
  Serious: Yes (Hospitalization)
  Sender: FDA-Public Use
  Company Number: 234986K06USA

PATIENT
  Age: 57 Year
  Sex: Female

DRUGS (20)
  1. REBIF [Suspect]
     Indication: MULTIPLE SCLEROSIS
     Dosage: 22 + 44 MCG, 3 IN 1 WEEKS, NOT REPORTED
     Dates: start: 20031001, end: 20031101
  2. REBIF [Suspect]
     Indication: MULTIPLE SCLEROSIS
     Dosage: 22 + 44 MCG, 3 IN 1 WEEKS, NOT REPORTED
     Dates: start: 20031101
  3. MIACALCIN [Concomitant]
  4. XALATAN [Concomitant]
  5. WELCHOL [Concomitant]
  6. FLUTICASONE (FLUTICASONE  /00972201/) [Concomitant]
  7. COMBIVENT [Concomitant]
  8. MARINOL [Concomitant]
  9. TEMAZEPAM [Concomitant]
  10. FUROSEMIDE (FUROSEMIDE  /00032601/) [Concomitant]
  11. COREG [Concomitant]
  12. GABITRIL [Concomitant]
  13. PLAVIX [Concomitant]
  14. VALIUM [Concomitant]
  15. LISINOPRIL (LISINOPRIL /00894001/) [Concomitant]
  16. SYNTHROID [Concomitant]
  17. TEGRETOL [Concomitant]
  18. PREVACID [Concomitant]
  19. TRAMADOL (TRAMADOL /00599201/) [Concomitant]
  20. PROCRIT [Concomitant]

REACTIONS (5)
  - ANAEMIA [None]
  - CARDIAC FAILURE CONGESTIVE [None]
  - FLUID INTAKE REDUCED [None]
  - INFLUENZA LIKE ILLNESS [None]
  - RENAL FAILURE [None]
